FAERS Safety Report 23127952 (Version 2)
Quarter: 2024Q1

REPORT INFORMATION
  Report Type: Other
  Country: IN (occurrence: None)
  Receive Date: 20231031
  Receipt Date: 20240129
  Transmission Date: 20240410
  Serious: Yes (Death, Other)
  Sender: FDA-Public Use
  Company Number: IN-ROCHE-3283791

PATIENT
  Age: 59 Year
  Sex: Male
  Weight: 73.9 kg

DRUGS (1)
  1. TECENTRIQ [Suspect]
     Active Substance: ATEZOLIZUMAB
     Indication: Neuroendocrine carcinoma
     Route: 041
     Dates: start: 20230126

REACTIONS (11)
  - Off label use [Unknown]
  - Off label use [Unknown]
  - Weight decreased [Recovered/Resolved]
  - Asthenia [Not Recovered/Not Resolved]
  - Decreased appetite [Recovered/Resolved]
  - Nausea [Recovered/Resolved]
  - Fungal skin infection [Unknown]
  - Vomiting [Recovered/Resolved]
  - Metastases to central nervous system [Unknown]
  - Brain oedema [Unknown]
  - Death [Fatal]

NARRATIVE: CASE EVENT DATE: 20230718
